FAERS Safety Report 21896593 (Version 2)
Quarter: 2023Q1

REPORT INFORMATION
  Report Type: Other
  Country: US (occurrence: None)
  Receive Date: 20230123
  Receipt Date: 20230215
  Transmission Date: 20230418
  Serious: Yes (Other)
  Sender: FDA-Public Use
  Company Number: US-ROCHE-2728512

PATIENT
  Age: 62 Year
  Sex: Female
  Weight: 66.284 kg

DRUGS (7)
  1. RITUXAN [Suspect]
     Active Substance: RITUXIMAB
     Indication: Pemphigus
     Dosage: EVERY 6 MONTHS 2 DOSES 2 WEEKS APART, TWO 1000 MG IV INFUSIONS SEPARATED BY 2 WEEKS TWICE A YEAR; DA
     Route: 042
     Dates: start: 20181221, end: 202106
  2. RITUXAN [Suspect]
     Active Substance: RITUXIMAB
     Indication: Pemphigus
     Dosage: 1 TOTAL
     Route: 042
     Dates: start: 20210610, end: 20210610
  3. RITUXAN [Suspect]
     Active Substance: RITUXIMAB
     Dosage: DATE OF SERVICE: 18/JAN/2023
     Route: 042
     Dates: start: 2019
  4. MYCOSTATIN [Concomitant]
     Active Substance: NYSTATIN
  5. VALTREX [Concomitant]
     Active Substance: VALACYCLOVIR HYDROCHLORIDE
  6. DECADRON [Concomitant]
     Active Substance: DEXAMETHASONE
  7. DIPROLENE AF [Concomitant]
     Active Substance: BETAMETHASONE DIPROPIONATE

REACTIONS (6)
  - Blister [Not Recovered/Not Resolved]
  - Stress [Unknown]
  - Road traffic accident [Unknown]
  - Off label use [Unknown]
  - Pemphigus [Not Recovered/Not Resolved]
  - COVID-19 [Unknown]

NARRATIVE: CASE EVENT DATE: 20221001
